FAERS Safety Report 21352803 (Version 2)
Quarter: 2022Q3

REPORT INFORMATION
  Report Type: Spontaneous
  Country: TW (occurrence: TW)
  Receive Date: 20220920
  Receipt Date: 20220923
  Transmission Date: 20221027
  Serious: Yes (Other)
  Sender: FDA-Public Use
  Company Number: TW-009507513-2209TWN005794

PATIENT
  Age: 53 Year
  Sex: Male

DRUGS (8)
  1. KEYTRUDA [Suspect]
     Active Substance: PEMBROLIZUMAB
     Indication: Oesophageal squamous cell carcinoma metastatic
     Dosage: 100 MILLIGRAM
     Dates: start: 202112, end: 202112
  2. KEYTRUDA [Suspect]
     Active Substance: PEMBROLIZUMAB
     Dosage: UNK
     Dates: start: 202201, end: 202201
  3. KEYTRUDA [Suspect]
     Active Substance: PEMBROLIZUMAB
     Dosage: UNK
     Dates: start: 202203, end: 202203
  4. KEYTRUDA [Suspect]
     Active Substance: PEMBROLIZUMAB
     Dosage: UNK
     Dates: start: 202203, end: 202203
  5. CISPLATIN [Suspect]
     Active Substance: CISPLATIN
     Indication: Oesophageal squamous cell carcinoma metastatic
     Dosage: UNK
     Dates: start: 202112, end: 202112
  6. CISPLATIN [Suspect]
     Active Substance: CISPLATIN
     Dosage: UNK
     Dates: start: 202201, end: 202201
  7. CISPLATIN [Suspect]
     Active Substance: CISPLATIN
     Dosage: UNK
     Dates: start: 202203, end: 202203
  8. CISPLATIN [Suspect]
     Active Substance: CISPLATIN
     Dosage: UNK
     Dates: start: 202203, end: 202203

REACTIONS (10)
  - Cerebrovascular accident [Recovered/Resolved]
  - Tracheal fistula [Unknown]
  - Malignant neoplasm progression [Unknown]
  - Cerebral artery stenosis [Unknown]
  - Cerebral artery occlusion [Unknown]
  - Cerebral infarction [Unknown]
  - Cerebral mass effect [Unknown]
  - Subcutaneous emphysema [Unknown]
  - Ill-defined disorder [Unknown]
  - Product use issue [Unknown]

NARRATIVE: CASE EVENT DATE: 20211201
